FAERS Safety Report 8100026 (Version 4)
Quarter: 2015Q2

REPORT INFORMATION
  Report Type: Report from Study
  Country: US (occurrence: US)
  Receive Date: 20110822
  Receipt Date: 20150424
  Transmission Date: 20150821
  Serious: Yes (Death, Hospitalization, Other)
  Sender: FDA-Public Use
  Company Number: US-ASTELLAS-2011US003658

PATIENT
  Age: 70 Year
  Sex: Female

DRUGS (1)
  1. ERLOTINIB [Suspect]
     Active Substance: ERLOTINIB
     Indication: LUNG NEOPLASM MALIGNANT
     Route: 048
     Dates: start: 20110614

REACTIONS (5)
  - Nausea [Unknown]
  - Malignant neoplasm progression [Fatal]
  - Fatigue [Unknown]
  - Respiratory failure [Fatal]
  - Rash generalised [Unknown]

NARRATIVE: CASE EVENT DATE: 20110818
